FAERS Safety Report 6071804-7 (Version None)
Quarter: 2009Q1

REPORT INFORMATION
  Report Type: 
  Country: None (occurrence: None)
  Receive Date: 20090210
  Receipt Date: 20090130
  Transmission Date: 20090719
  Serious: Yes (Life-Threatening, Other)
  Sender: FDA-Public Use
  Company Number: PHHY2008CA32798

PATIENT
  Sex: Female

DRUGS (8)
  1. CLOZARIL [Suspect]
     Indication: SCHIZOPHRENIA
     Dosage: 400 MG DAILY
     Dates: start: 20050304, end: 20081201
  2. CLOZARIL [Suspect]
     Indication: PSYCHOTIC DISORDER
  3. PAXIL [Concomitant]
     Dosage: 50-60 MG
  4. IMOVANE [Concomitant]
     Dosage: 7.5-15 MG
  5. EPIVAL [Concomitant]
     Dosage: 750 MG, QD
     Dates: start: 20060530
  6. AVONEX [Concomitant]
     Indication: MULTIPLE SCLEROSIS
     Dosage: UNK
     Dates: start: 20050701, end: 20070101
  7. STEROIDS NOS [Concomitant]
     Indication: MULTIPLE SCLEROSIS
     Dosage: UNK
  8. REBIF                                   /NET/ [Suspect]

REACTIONS (11)
  - GRAND MAL CONVULSION [None]
  - HAEMATOCRIT DECREASED [None]
  - HAEMOGLOBIN DECREASED [None]
  - LYMPHOCYTE COUNT DECREASED [None]
  - MULTIPLE SCLEROSIS [None]
  - NEUTROPHIL COUNT DECREASED [None]
  - PLATELET COUNT DECREASED [None]
  - RED BLOOD CELL COUNT DECREASED [None]
  - RED CELL DISTRIBUTION WIDTH INCREASED [None]
  - SUICIDE ATTEMPT [None]
  - WHITE BLOOD CELL COUNT DECREASED [None]
